FAERS Safety Report 11838000 (Version 1)
Quarter: 2015Q4

REPORT INFORMATION
  Report Type: Spontaneous
  Country: GB (occurrence: GB)
  Receive Date: 20151215
  Receipt Date: 20151215
  Transmission Date: 20160305
  Serious: Yes (Hospitalization)
  Sender: FDA-Public Use
  Company Number: GB-TEVA-615844ACC

PATIENT
  Age: 57 Year
  Sex: Female
  Weight: 73.47 kg

DRUGS (1)
  1. PROPRANOLOL [Suspect]
     Active Substance: PROPRANOLOL\PROPRANOLOL HYDROCHLORIDE
     Indication: ANXIETY
     Dosage: 80 MILLIGRAM DAILY; TOOK TWO - ONE ON THE FIRST DAY AND ONE ON THE SECOND DAY.
     Route: 048
     Dates: start: 20151123, end: 20151124

REACTIONS (5)
  - Dyspnoea [Recovered/Resolved]
  - Pallor [Recovered/Resolved]
  - Fatigue [Unknown]
  - Feeling of body temperature change [Recovered/Resolved]
  - Bradycardia [Recovered/Resolved]

NARRATIVE: CASE EVENT DATE: 20151124
